FAERS Safety Report 17143083 (Version 2)
Quarter: 2020Q1

REPORT INFORMATION
  Report Type: Report from Study
  Country: US (occurrence: US)
  Receive Date: 20191211
  Receipt Date: 20200109
  Transmission Date: 20200409
  Serious: Yes (Hospitalization, Other)
  Sender: FDA-Public Use
  Company Number: US-GILEAD-2019-0442336

PATIENT
  Sex: Male

DRUGS (23)
  1. SMZ-TMP [Concomitant]
     Active Substance: SULFAMETHOXAZOLE\TRIMETHOPRIM
  2. VALGANCICLOVIR. [Concomitant]
     Active Substance: VALGANCICLOVIR
  3. CREON [Concomitant]
     Active Substance: PANCRELIPASE AMYLASE\PANCRELIPASE LIPASE\PANCRELIPASE PROTEASE
  4. TACROLIMUS. [Concomitant]
     Active Substance: TACROLIMUS
  5. PULMOZYME [Concomitant]
     Active Substance: DORNASE ALFA
  6. TRAMADOL. [Concomitant]
     Active Substance: TRAMADOL
  7. DRONABINOL. [Concomitant]
     Active Substance: DRONABINOL
  8. SERTRALINE [Concomitant]
     Active Substance: SERTRALINE HYDROCHLORIDE
  9. AZTREONAM LYSINE [Suspect]
     Active Substance: AZTREONAM LYSINE
     Indication: PSEUDOMONAS INFECTION
     Dosage: 75 MG, TID FOR 28 DAYS
     Route: 055
     Dates: start: 20170226
  10. PREDNISONE. [Concomitant]
     Active Substance: PREDNISONE
  11. FLUCONAZOLE. [Concomitant]
     Active Substance: FLUCONAZOLE
  12. ANDROGEL [Concomitant]
     Active Substance: TESTOSTERONE
  13. DILTIAZEM. [Concomitant]
     Active Substance: DILTIAZEM
  14. LOSARTAN. [Concomitant]
     Active Substance: LOSARTAN
  15. AMLODIPINE [Concomitant]
     Active Substance: AMLODIPINE BESYLATE
  16. COLISTIMETHATE [COLISTIMETHATE SODIUM] [Concomitant]
     Active Substance: COLISTIMETHATE SODIUM
  17. AZTREONAM LYSINE [Suspect]
     Active Substance: AZTREONAM LYSINE
     Indication: CYSTIC FIBROSIS LUNG
     Dosage: UNK
     Route: 055
     Dates: start: 201004
  18. OXYCODONE [Concomitant]
     Active Substance: OXYCODONE
  19. ELIQUIS [Concomitant]
     Active Substance: APIXABAN
  20. AZATHIOPRINE. [Concomitant]
     Active Substance: AZATHIOPRINE
  21. MIRTAZAPINE. [Concomitant]
     Active Substance: MIRTAZAPINE
  22. SODIUM BICARBONATE. [Concomitant]
     Active Substance: SODIUM BICARBONATE
  23. TRAZODONE [Concomitant]
     Active Substance: TRAZODONE HYDROCHLORIDE

REACTIONS (1)
  - Lung transplant [Recovered/Resolved]

NARRATIVE: CASE EVENT DATE: 2019
